FAERS Safety Report 24532726 (Version 1)
Quarter: 2024Q4

REPORT INFORMATION
  Report Type: Spontaneous
  Country: FR (occurrence: FR)
  Receive Date: 20241022
  Receipt Date: 20241022
  Transmission Date: 20250114
  Serious: Yes (Hospitalization)
  Sender: RANBAXY
  Company Number: FR-AFSSAPS-AN2024001162

PATIENT
  Age: 37 Year
  Sex: Male
  Weight: 68.1 kg

DRUGS (3)
  1. IBUPROFEN [Suspect]
     Active Substance: IBUPROFEN
     Indication: Self-medication
     Dosage: 2 DOSAGE FORM, UNK
     Route: 048
     Dates: start: 20240719, end: 20240719
  2. MELATONIN [Concomitant]
     Active Substance: MELATONIN
     Indication: Anxiety
     Dosage: 2 MILLIGRAM, UNK
     Route: 048
     Dates: start: 20240719, end: 20240719
  3. ALPRAZOLAM [Concomitant]
     Active Substance: ALPRAZOLAM
     Indication: Anxiety
     Dosage: 1 DOSAGE FORM, UNK
     Route: 048
     Dates: start: 20240719, end: 20240719

REACTIONS (1)
  - Encephalitis [Recovered/Resolved]

NARRATIVE: CASE EVENT DATE: 20240720
